FAERS Safety Report 8421008 (Version 3)
Quarter: 2015Q2

REPORT INFORMATION
  Report Type: Spontaneous
  Country: US (occurrence: US)
  Receive Date: 20120222
  Receipt Date: 20150622
  Transmission Date: 20150821
  Serious: Yes (Death, Other)
  Sender: FDA-Public Use
  Company Number: US-MPIJNJ-2012-01090

PATIENT
  Sex: Male

DRUGS (1)
  1. VELCADE [Suspect]
     Active Substance: BORTEZOMIB
     Indication: PERIPHERAL T-CELL LYMPHOMA UNSPECIFIED
     Dosage: 1.6 MG/M2, CYCLIC
     Route: 042
     Dates: start: 20110812, end: 20110916

REACTIONS (3)
  - Mycosis fungoides [Fatal]
  - Gastrointestinal haemorrhage [Unknown]
  - Abdominal pain [Unknown]
